FAERS Safety Report 12174548 (Version 15)
Quarter: 2017Q4

REPORT INFORMATION
  Report Type: Report from Study
  Country: JP (occurrence: JP)
  Receive Date: 20160312
  Receipt Date: 20171026
  Transmission Date: 20180320
  Serious: Yes (Other)
  Sender: FDA-Public Use
  Company Number: JP-AMGEN-JPNCT2016014791

PATIENT
  Age: 79 Year
  Sex: Female
  Weight: 42.2 kg

DRUGS (19)
  1. FLUOROURACIL. [Suspect]
     Active Substance: FLUOROURACIL
     Dosage: 2000 MG/M2, Q2WEEKS
     Route: 041
     Dates: start: 20160407, end: 20160407
  2. FLUOROURACIL. [Suspect]
     Active Substance: FLUOROURACIL
     Dosage: 2000 MG/M2, Q2WEEKS
     Route: 041
     Dates: start: 20160512, end: 20160915
  3. PANITUMUMAB [Suspect]
     Active Substance: PANITUMUMAB
     Indication: RECTAL CANCER
     Dosage: 350 MG, Q2WK
     Route: 041
     Dates: start: 20151216, end: 20160201
  4. PANITUMUMAB [Suspect]
     Active Substance: PANITUMUMAB
     Dosage: 350 MG, Q2WK
     Route: 041
     Dates: start: 20160428, end: 20160602
  5. OXALIPLATIN. [Suspect]
     Active Substance: OXALIPLATIN
     Dosage: 65 MG/M2, Q2WEEKS
     Route: 041
     Dates: start: 20160229, end: 20160229
  6. OXALIPLATIN. [Suspect]
     Active Substance: OXALIPLATIN
     Dosage: 65 MG/M2, Q2WEEKS
     Route: 041
     Dates: start: 20160512, end: 20160602
  7. FLUOROURACIL. [Suspect]
     Active Substance: FLUOROURACIL
     Dosage: 200 MG/M2, Q2WK
     Route: 040
     Dates: start: 20160229, end: 20160229
  8. CALCIUM LEVOFOLINATE [Concomitant]
     Active Substance: LEVOLEUCOVORIN CALCIUM
     Dosage: 300 MG, Q2WEEKS
     Route: 041
     Dates: start: 20160229, end: 20160229
  9. PANITUMUMAB [Suspect]
     Active Substance: PANITUMUMAB
     Dosage: 350 MG, Q2WK
     Route: 041
     Dates: start: 20160229, end: 20160317
  10. OXALIPLATIN. [Suspect]
     Active Substance: OXALIPLATIN
     Dosage: 65 MG/M2, Q2WEEKS
     Route: 041
     Dates: start: 20160407, end: 20160407
  11. CALCIUM LEVOFOLINATE [Concomitant]
     Active Substance: LEVOLEUCOVORIN CALCIUM
     Dosage: 300 MG, Q2WEEKS
     Route: 041
     Dates: start: 20160407, end: 20160407
  12. FLUOROURACIL. [Suspect]
     Active Substance: FLUOROURACIL
     Indication: RECTAL CANCER
     Dosage: 500 MG, Q2WK
     Route: 040
     Dates: start: 20151216, end: 20160201
  13. CALCIUM LEVOFOLINATE [Concomitant]
     Active Substance: LEVOLEUCOVORIN CALCIUM
     Dosage: 300 MG, Q2WEEKS
     Route: 041
     Dates: start: 20160512, end: 20160915
  14. FLUOROURACIL. [Suspect]
     Active Substance: FLUOROURACIL
     Dosage: 200 MG/M2, Q2WK
     Route: 040
     Dates: start: 20160407, end: 20160407
  15. FLUOROURACIL. [Suspect]
     Active Substance: FLUOROURACIL
     Dosage: 3100 MG/M2, Q2WK
     Route: 041
     Dates: start: 20151216, end: 20160201
  16. FLUOROURACIL. [Suspect]
     Active Substance: FLUOROURACIL
     Dosage: 2000 MG/M2, Q2WEEKS
     Route: 041
     Dates: start: 20160229, end: 20160229
  17. FLUOROURACIL. [Suspect]
     Active Substance: FLUOROURACIL
     Dosage: 200 MG/M2, Q2WK
     Route: 040
     Dates: start: 20160512, end: 20160915
  18. OXALIPLATIN. [Suspect]
     Active Substance: OXALIPLATIN
     Indication: RECTAL CANCER
     Dosage: 110 MG, Q2WEEKS
     Route: 041
     Dates: start: 20151216, end: 20160201
  19. CALCIUM LEVOFOLINATE [Concomitant]
     Active Substance: LEVOLEUCOVORIN CALCIUM
     Indication: RECTAL CANCER
     Dosage: 300 MG, Q2WEEKS
     Route: 041
     Dates: start: 20151216, end: 20160201

REACTIONS (14)
  - Pruritus [Recovered/Resolved]
  - Nausea [Recovered/Resolved]
  - Constipation [Recovered/Resolved]
  - Paronychia [Recovered/Resolved]
  - Decreased appetite [Recovered/Resolved]
  - Dry skin [Recovered/Resolved]
  - Neutrophil count decreased [Recovered/Resolved]
  - Laceration [Recovered/Resolved]
  - Rash [Recovered/Resolved]
  - Fatigue [Recovered/Resolved]
  - Peripheral sensory neuropathy [Recovered/Resolved]
  - Peripheral sensory neuropathy [Recovered/Resolved]
  - Paronychia [Recovered/Resolved]
  - Stomatitis [Recovered/Resolved]

NARRATIVE: CASE EVENT DATE: 20160216
